FAERS Safety Report 25238482 (Version 3)
Quarter: 2025Q3

REPORT INFORMATION
  Report Type: Spontaneous
  Country: JP (occurrence: JP)
  Receive Date: 20250425
  Receipt Date: 20250718
  Transmission Date: 20251021
  Serious: Yes (Death, Other)
  Sender: GLAXOSMITHKLINE
  Company Number: JP-GSK-JP2025JPN048479

PATIENT
  Sex: Male
  Weight: 63.4 kg

DRUGS (2)
  1. DAPRODUSTAT [Suspect]
     Active Substance: DAPRODUSTAT
     Indication: Nephrogenic anaemia
  2. TENAPANOR HYDROCHLORIDE [Suspect]
     Active Substance: TENAPANOR HYDROCHLORIDE
     Indication: Hyperphosphataemia
     Dosage: 5 MG, BID

REACTIONS (3)
  - Acute myocardial infarction [Fatal]
  - Arteriosclerosis coronary artery [Unknown]
  - Vascular stent stenosis [Unknown]

NARRATIVE: CASE EVENT DATE: 20250302
